FAERS Safety Report 22278645 (Version 1)
Quarter: 2023Q2

REPORT INFORMATION
  Report Type: Report from Study
  Country: US (occurrence: US)
  Receive Date: 20230503
  Receipt Date: 20230503
  Transmission Date: 20230721
  Serious: Yes (Hospitalization, Other)
  Sender: FDA-Public Use
  Company Number: US-TAKEDA-2023TUS042791

PATIENT
  Age: 21 Year
  Sex: Female

DRUGS (1)
  1. HUMAN IMMUNOGLOBULIN G [Suspect]
     Active Substance: HUMAN IMMUNOGLOBULIN G
     Indication: Product used for unknown indication
     Dosage: UNK
     Route: 065
     Dates: start: 20200429, end: 20230327

REACTIONS (5)
  - Heterotaxia [Unknown]
  - Hypervolaemia [Unknown]
  - Blood immunoglobulin G decreased [Unknown]
  - Insurance issue [Unknown]
  - Infection [Unknown]

NARRATIVE: CASE EVENT DATE: 20230306
